FAERS Safety Report 23227555 (Version 3)
Quarter: 2025Q1

REPORT INFORMATION
  Report Type: Report from Study
  Country: US (occurrence: US)
  Receive Date: 20231124
  Receipt Date: 20250219
  Transmission Date: 20250408
  Serious: Yes (Other)
  Sender: NOVARTIS
  Company Number: US-002147023-NVSC2023US250639

PATIENT
  Sex: Female

DRUGS (3)
  1. KESIMPTA [Suspect]
     Active Substance: OFATUMUMAB
     Indication: Multiple sclerosis
     Dosage: 20 MG, QMO
     Route: 058
  2. KESIMPTA [Suspect]
     Active Substance: OFATUMUMAB
     Route: 058
  3. KESIMPTA [Suspect]
     Active Substance: OFATUMUMAB
     Route: 058

REACTIONS (11)
  - Pneumonia [Unknown]
  - Taste disorder [Recovering/Resolving]
  - Migraine [Unknown]
  - Nausea [Unknown]
  - Headache [Unknown]
  - Injection site pain [Recovering/Resolving]
  - Influenza [Unknown]
  - Cough [Recovering/Resolving]
  - Skin injury [Unknown]
  - Nasal congestion [Unknown]
  - Fatigue [Unknown]
